FAERS Safety Report 12490142 (Version 2)
Quarter: 2016Q3

REPORT INFORMATION
  Report Type: Spontaneous
  Country: GE (occurrence: GE)
  Receive Date: 20160622
  Receipt Date: 20160701
  Transmission Date: 20161109
  Serious: Yes (Other)
  Sender: FDA-Public Use
  Company Number: GE-ASTRAZENECA-2016SE66076

PATIENT
  Age: 752 Month
  Sex: Female

DRUGS (4)
  1. FASLODEX [Suspect]
     Active Substance: FULVESTRANT
     Route: 030
     Dates: start: 201502
  2. TAMOXIFEN [Concomitant]
     Active Substance: TAMOXIFEN
  3. FEMARA [Concomitant]
     Active Substance: LETROZOLE
  4. CO-RENITEC [Concomitant]
     Active Substance: ENALAPRIL\HYDROCHLOROTHIAZIDE
     Indication: HYPERTENSION
     Dosage: 20MG/12.5MG TABLETS

REACTIONS (6)
  - Headache [Unknown]
  - Rash generalised [Recovered/Resolved]
  - Atrial flutter [Unknown]
  - Hypertension [Recovered/Resolved]
  - Asthenia [Recovered/Resolved]
  - Hot flush [Recovered/Resolved]

NARRATIVE: CASE EVENT DATE: 201601
